FAERS Safety Report 10765872 (Version 1)
Quarter: 2015Q1

REPORT INFORMATION
  Report Type: Spontaneous
  Country: US (occurrence: None)
  Receive Date: 20150204
  Receipt Date: 20150204
  Transmission Date: 20150721
  Serious: Yes (Hospitalization)
  Sender: FDA-Public Use
  Company Number: None

PATIENT
  Age: 82 Year
  Sex: Male
  Weight: 96.6 kg

DRUGS (12)
  1. COUMADIN [Suspect]
     Active Substance: WARFARIN SODIUM
     Indication: CEREBROVASCULAR ACCIDENT
     Dosage: 3MG QMWF PO?CHRONIC
     Route: 048
  2. ASPIRIN. [Suspect]
     Active Substance: ASPIRIN
     Indication: CEREBROVASCULAR ACCIDENT
     Dosage: CHRONIC
     Route: 048
  3. DULOXETINE [Concomitant]
     Active Substance: DULOXETINE
  4. VICODIN [Concomitant]
     Active Substance: ACETAMINOPHEN\HYDROCODONE BITARTRATE
  5. NORCO [Concomitant]
     Active Substance: ACETAMINOPHEN\HYDROCODONE BITARTRATE
  6. LANTUS [Concomitant]
     Active Substance: INSULIN GLARGINE
  7. OXYBUTYNIN [Concomitant]
     Active Substance: OXYBUTYNIN
  8. CRESTOR [Concomitant]
     Active Substance: ROSUVASTATIN CALCIUM
  9. HUMALOG [Concomitant]
     Active Substance: INSULIN LISPRO
  10. KEFLEX [Suspect]
     Active Substance: CEPHALEXIN
     Indication: URINARY TRACT INFECTION
  11. COUMADIN [Suspect]
     Active Substance: WARFARIN SODIUM
     Indication: ATRIAL FIBRILLATION
     Dosage: 3MG QMWF PO?CHRONIC
     Route: 048
  12. THERAGRAN [Concomitant]
     Active Substance: VITAMINS

REACTIONS (5)
  - Coagulopathy [None]
  - International normalised ratio increased [None]
  - Traumatic haematoma [None]
  - Acute kidney injury [None]
  - Haemolytic anaemia [None]

NARRATIVE: CASE EVENT DATE: 20141014
